FAERS Safety Report 8688120 (Version 7)
Quarter: 2015Q3

REPORT INFORMATION
  Report Type: Report from Study
  Country: JP (occurrence: JP)
  Receive Date: 20120727
  Receipt Date: 20150817
  Transmission Date: 20151125
  Serious: Yes (Death, Life-Threatening, Hospitalization)
  Sender: FDA-Public Use
  Company Number: JP-009507513-2012SP015613

PATIENT
  Age: 77 Year
  Sex: Female
  Weight: 33 kg

DRUGS (31)
  1. TEMOZOLOMIDE. [Suspect]
     Active Substance: TEMOZOLOMIDE
     Dosage: 200 MG/M2, QD
     Route: 041
  2. TEMODAL [Suspect]
     Active Substance: TEMOZOLOMIDE
     Dosage: DAILY DOSAGE UNKNOWN
     Route: 065
     Dates: start: 20111219, end: 20111223
  3. BAKTAR [Concomitant]
     Active Substance: SULFAMETHOXAZOLE\TRIMETHOPRIM
     Indication: ANTIFUNGAL PROPHYLAXIS
     Dosage: DAILY DOSAGE UNKNOWN, FORMULATION: POR
     Route: 048
     Dates: start: 20110120, end: 20110328
  4. NEUQUINON [Concomitant]
     Active Substance: UBIDECARENONE
     Dosage: 10 MG, TID, FORMULATION: POR
     Route: 048
  5. INTEBAN [Concomitant]
     Active Substance: INDOMETHACIN
     Indication: PROPHYLAXIS
     Dosage: DAILY DOSAGE UNKNOWN
     Route: 054
     Dates: start: 20110113, end: 20110216
  6. TEMOZOLOMIDE. [Suspect]
     Active Substance: TEMOZOLOMIDE
     Dosage: 200 MG/M2, QD
     Route: 041
     Dates: start: 20110620, end: 20110624
  7. TEMODAL [Suspect]
     Active Substance: TEMOZOLOMIDE
     Indication: ANAPLASTIC ASTROCYTOMA
     Dosage: 240 MG, QD,
     Route: 048
     Dates: start: 20120514, end: 20120514
  8. URSO [Concomitant]
     Active Substance: URSODIOL
     Dosage: DAILY DOSAGE UNKNOWN, FORMULATION: POR
     Route: 048
     Dates: start: 20110116, end: 20110315
  9. LAXOBERON [Concomitant]
     Active Substance: SODIUM PICOSULFATE
     Dosage: DAILY DOSAGE UNKNOWN, FORMULATION: POR
     Route: 048
     Dates: start: 20110113, end: 20110216
  10. GRANISETRON [Concomitant]
     Active Substance: GRANISETRON
     Indication: PROPHYLAXIS
  11. TEMOZOLOMIDE. [Suspect]
     Active Substance: TEMOZOLOMIDE
     Dosage: 200 MG/M2, QD
     Route: 041
     Dates: start: 20110516, end: 20110520
  12. WARFARIN POTASSIUM [Concomitant]
     Active Substance: WARFARIN POTASSIUM
     Dosage: 1.79 G, QD
     Route: 048
  13. TEMOZOLOMIDE. [Suspect]
     Active Substance: TEMOZOLOMIDE
     Dosage: 200 MG/M2, QD
     Route: 041
     Dates: start: 20120528, end: 20120601
  14. TEMODAL [Suspect]
     Active Substance: TEMOZOLOMIDE
     Dosage: DAILY DOSAGE UNKNOWN
     Route: 065
     Dates: start: 20120212, end: 20120216
  15. DIOVAN [Concomitant]
     Active Substance: VALSARTAN
     Dosage: DAILY DOSAGE UNKNOWN
     Route: 048
     Dates: start: 20110111, end: 20110330
  16. TEGRETOL [Concomitant]
     Active Substance: CARBAMAZEPINE
     Dosage: DAILY DOSAGE UNKNOWN, FORMULATION: POR
     Route: 048
     Dates: start: 20110111, end: 20110315
  17. BAKTAR [Concomitant]
     Active Substance: SULFAMETHOXAZOLE\TRIMETHOPRIM
     Indication: PROPHYLAXIS
  18. TAKEPRON [Concomitant]
     Active Substance: LANSOPRAZOLE
     Dosage: DAILY DOSAGE UNKNOWN
     Route: 048
     Dates: start: 20110111, end: 20110330
  19. TEMOZOLOMIDE. [Suspect]
     Active Substance: TEMOZOLOMIDE
     Indication: ANAPLASTIC ASTROCYTOMA
     Dosage: 75 MG/M2, QD
     Route: 041
     Dates: start: 20110119, end: 20110301
  20. TEMOZOLOMIDE. [Suspect]
     Active Substance: TEMOZOLOMIDE
     Dosage: 200 MG/M2, QD
     Route: 041
     Dates: start: 20110719, end: 20110723
  21. PREDNISOLONE. [Suspect]
     Active Substance: PREDNISOLONE
     Dosage: DAILY DOSAGE UNKNOWN, FORMULATION: POR
     Route: 048
     Dates: start: 20110111, end: 20110315
  22. NEUQUINON [Concomitant]
     Active Substance: UBIDECARENONE
     Dosage: DAILY DOSE UNKNOWN, FORMULATION: POR
     Route: 048
     Dates: start: 20110111, end: 20110330
  23. LIPOVAS (SIMVASTATIN) [Concomitant]
     Dosage: DAILY DOSAGE UNKNOWN
     Route: 048
     Dates: start: 20110111, end: 20110330
  24. WARFARIN POTASSIUM [Concomitant]
     Active Substance: WARFARIN POTASSIUM
     Dosage: DAILY DOSAGE UNKNOWN
     Route: 048
     Dates: start: 20110117, end: 20110330
  25. BIOFERMIN R [Concomitant]
     Active Substance: BACILLUS SUBTILIS\LACTOBACILLUS ACIDOPHILUS\STREPTOCOCCUS FAECAIS
     Dosage: 3 MG, TID, FORMULATION: POR
     Route: 048
  26. MAGNESIUM OXIDE. [Concomitant]
     Active Substance: MAGNESIUM OXIDE
  27. TEMOZOLOMIDE. [Suspect]
     Active Substance: TEMOZOLOMIDE
     Dosage: 150 MG/M2, QD
     Route: 041
     Dates: start: 20110317, end: 20110321
  28. TEMOZOLOMIDE. [Suspect]
     Active Substance: TEMOZOLOMIDE
     Dosage: 200 MG/M2, QD
     Route: 041
     Dates: start: 20110414, end: 20110418
  29. TEMODAL [Suspect]
     Active Substance: TEMOZOLOMIDE
     Dosage: DAILY DOSAGE UNKNOWN
     Route: 065
     Dates: start: 20120118, end: 20120122
  30. WYPAX [Concomitant]
     Active Substance: LORAZEPAM
     Dosage: DAILY DOSAGE UNKNOWN
     Route: 048
     Dates: start: 20110111, end: 20110330
  31. MYSLEE [Concomitant]
     Active Substance: ZOLPIDEM TARTRATE
     Dosage: DAILY DOSAGE UNKNOWN
     Route: 048
     Dates: start: 20110113, end: 20110216

REACTIONS (13)
  - Sepsis [Recovered/Resolved]
  - Asthenia [Unknown]
  - Pyrexia [Recovered/Resolved]
  - Decreased appetite [Not Recovered/Not Resolved]
  - Lymphocyte count decreased [Not Recovered/Not Resolved]
  - Pyrexia [Recovered/Resolved]
  - Pneumonia aspiration [Recovered/Resolved]
  - Herpes zoster [Recovered/Resolved]
  - Disease progression [Fatal]
  - Vomiting [Recovered/Resolved]
  - Nausea [Recovering/Resolving]
  - Neutrophil count increased [Not Recovered/Not Resolved]
  - Diarrhoea [Not Recovered/Not Resolved]

NARRATIVE: CASE EVENT DATE: 20110124
